FAERS Safety Report 9721180 (Version 2)
Quarter: 2013Q4

REPORT INFORMATION
  Report Type: Spontaneous
  Country: US (occurrence: US)
  Receive Date: 20131129
  Receipt Date: 20131210
  Transmission Date: 20140711
  Serious: No
  Sender: FDA-Public Use
  Company Number: US-PFIZER INC-2013338300

PATIENT
  Age: 58 Year
  Sex: Female
  Weight: 113 kg

DRUGS (7)
  1. CELEBREX [Suspect]
     Indication: ARTHRALGIA
     Dosage: 200 MG, DAILY
     Dates: start: 201309
  2. CELEBREX [Suspect]
     Indication: ARTHRITIS
  3. CELEBREX [Suspect]
     Indication: OSTEOARTHRITIS
  4. CELEBREX [Suspect]
     Indication: ARTHRALGIA
  5. IBUPROFEN [Suspect]
     Indication: ARTHRALGIA
     Dosage: UNK
  6. SYNTHROID [Concomitant]
     Indication: THYROID DISORDER
     Dosage: 150 UG, 1X/DAY
  7. TYLENOL [Concomitant]
     Indication: ARTHRALGIA
     Dosage: UNK

REACTIONS (4)
  - Pain in extremity [Unknown]
  - Arthralgia [Unknown]
  - Drug ineffective [Unknown]
  - Nasopharyngitis [Unknown]
